FAERS Safety Report 22325742 (Version 3)
Quarter: 2025Q1

REPORT INFORMATION
  Report Type: Spontaneous
  Country: JP (occurrence: JP)
  Receive Date: 20230516
  Receipt Date: 20250116
  Transmission Date: 20250409
  Serious: Yes (Hospitalization, Other)
  Sender: ALEXION PHARMACEUTICALS
  Company Number: 2023A107072

PATIENT
  Age: 55 Year
  Weight: 65 kg

DRUGS (7)
  1. IMFINZI [Suspect]
     Active Substance: DURVALUMAB
     Indication: Non-small cell lung cancer
     Dosage: 620 MILLIGRAM, Q2W
  2. CODEINE PHOSPHATE [Concomitant]
     Active Substance: CODEINE PHOSPHATE
  3. METGLUCO [Concomitant]
     Active Substance: METFORMIN HYDROCHLORIDE
  4. EMPAGLIFLOZIN\LINAGLIPTIN [Concomitant]
     Active Substance: EMPAGLIFLOZIN\LINAGLIPTIN
  5. ENALAPRIL [Concomitant]
     Active Substance: ENALAPRIL
  6. BISOPROLOL FUMARATE [Concomitant]
     Active Substance: BISOPROLOL FUMARATE
  7. CELECOXIB [Concomitant]
     Active Substance: CELECOXIB

REACTIONS (2)
  - Eosinophilic fasciitis [Not Recovered/Not Resolved]
  - Hyperthyroidism [Recovered/Resolved]
